FAERS Safety Report 18554091 (Version 1)
Quarter: 2020Q4

REPORT INFORMATION
  Report Type: Spontaneous
  Country: IT (occurrence: IT)
  Receive Date: 20201127
  Receipt Date: 20201127
  Transmission Date: 20210114
  Serious: Yes (Hospitalization)
  Sender: FDA-Public Use
  Company Number: IT-SA-2020SA335609

PATIENT

DRUGS (6)
  1. ZALTRAP [Suspect]
     Active Substance: ZIV-AFLIBERCEPT
     Indication: COLON CANCER STAGE IV
     Dosage: 300 MG, QCY
     Route: 042
     Dates: start: 20190530, end: 20190530
  2. IRINOTECAN [Suspect]
     Active Substance: IRINOTECAN
     Indication: COLON CANCER STAGE IV
     Dosage: 350 MG, QCY
     Route: 042
     Dates: start: 20190530, end: 20190530
  3. FLUOROURACIL. [Suspect]
     Active Substance: FLUOROURACIL
     Indication: COLON CANCER STAGE IV
     Dosage: 5250 MG, QCY
     Route: 042
     Dates: start: 20190530, end: 20190530
  4. IRINOTECAN [Suspect]
     Active Substance: IRINOTECAN
     Dosage: 350 MG, QCY
     Route: 042
     Dates: start: 20200206, end: 20200206
  5. ZALTRAP [Suspect]
     Active Substance: ZIV-AFLIBERCEPT
     Dosage: 300 MG, QCY
     Route: 042
     Dates: start: 20200206, end: 20200206
  6. FLUOROURACIL. [Suspect]
     Active Substance: FLUOROURACIL
     Dosage: 5250 MG, QCY
     Route: 042
     Dates: start: 20200206, end: 20200206

REACTIONS (3)
  - Diarrhoea [Recovering/Resolving]
  - Fatigue [Recovering/Resolving]
  - Dysphagia [Recovering/Resolving]

NARRATIVE: CASE EVENT DATE: 20200207
